FAERS Safety Report 9306751 (Version 1)
Quarter: 2013Q2

REPORT INFORMATION
  Report Type: Spontaneous
  Country: US (occurrence: US)
  Receive Date: 20130523
  Receipt Date: 20130523
  Transmission Date: 20140414
  Serious: Yes (Other)
  Sender: FDA-Public Use
  Company Number: US-PFIZER INC-2013156985

PATIENT
  Age: 35 Year
  Sex: Female
  Weight: 95.24 kg

DRUGS (2)
  1. LYRICA [Suspect]
     Indication: BACK PAIN
     Dosage: UNK, 2X/DAY
     Dates: start: 201304
  2. LYRICA [Suspect]
     Indication: MYALGIA
     Dosage: 50 MG, 3X/DAY
     Dates: start: 2013

REACTIONS (2)
  - Contusion [Unknown]
  - Skin disorder [Unknown]
